FAERS Safety Report 17207187 (Version 1)
Quarter: 2019Q4

REPORT INFORMATION
  Report Type: Spontaneous
  Country: TR (occurrence: TR)
  Receive Date: 20191227
  Receipt Date: 20191227
  Transmission Date: 20200122
  Serious: Yes (Other)
  Sender: FDA-Public Use
  Company Number: NVSC2019TR078967

PATIENT
  Age: 37 Year
  Sex: Female

DRUGS (1)
  1. STALEVO [Suspect]
     Active Substance: CARBIDOPA\ENTACAPONE\LEVODOPA
     Indication: TREMOR
     Dosage: UNK
     Route: 065
     Dates: start: 2006

REACTIONS (7)
  - Musculoskeletal stiffness [Unknown]
  - Bruxism [Unknown]
  - Drug dependence [Unknown]
  - Trismus [Unknown]
  - Prescription drug used without a prescription [Unknown]
  - Gait disturbance [Unknown]
  - Parkinsonism [Unknown]
